FAERS Safety Report 4279522-2 (Version None)
Quarter: 2004Q1

REPORT INFORMATION
  Report Type: 
  Country: None (occurrence: None)
  Receive Date: 20040126
  Receipt Date: 20040126
  Transmission Date: 20041129
  Serious: Yes (Hospitalization)
  Sender: FDA-Public Use
  Company Number: None

PATIENT
  Age: 60 Year
  Sex: Female
  Weight: 59.8748 kg

DRUGS (2)
  1. PACLITAXEL [Suspect]
     Indication: OVARIAN CANCER
     Dosage: 280 MG Q 21 DAYS INTRAVENOUS
     Route: 042
     Dates: start: 20040116, end: 20040116
  2. CARBOPLATIN [Suspect]
     Dosage: 665 MG Q 21 DAYS INTRAVENOUS
     Route: 042
     Dates: start: 20040116, end: 20040116

REACTIONS (4)
  - CONSTIPATION [None]
  - METASTASES TO LIVER [None]
  - PLEURITIC PAIN [None]
  - VOMITING [None]
